FAERS Safety Report 7513749-9 (Version None)
Quarter: 2011Q2

REPORT INFORMATION
  Report Type: 
  Country: None (occurrence: None)
  Receive Date: 20110531
  Receipt Date: 20110524
  Transmission Date: 20111010
  Serious: Yes (Other)
  Sender: FDA-Public Use
  Company Number: JP-PFIZER INC-2011088298

PATIENT
  Age: 82 Year
  Sex: Male
  Weight: 54 kg

DRUGS (8)
  1. LYRICA [Suspect]
     Indication: CERVICAL MYELOPATHY
     Dosage: 75 MG, 2X/DAY
     Route: 048
     Dates: start: 20110404, end: 20110418
  2. LYRICA [Suspect]
     Dosage: 300 MG, 2X/DAY
     Route: 048
     Dates: start: 20110418, end: 20110424
  3. LYRICA [Suspect]
     Dosage: 75 MG 1X/DAY IN THE MORNING
     Route: 048
     Dates: start: 20110425, end: 20110428
  4. LYRICA [Suspect]
     Dosage: 150 MG, 1X/DAY, IN THE EVENING
     Route: 048
     Dates: start: 20110425, end: 20110428
  5. LYRICA [Suspect]
     Dosage: 75 MG, 2X/DAY
     Route: 048
     Dates: start: 20110429, end: 20110430
  6. LOXONIN [Concomitant]
     Dosage: 40 MG/DAY
     Route: 048
  7. GLACTIVE [Concomitant]
     Dosage: 25 MG/DAY
     Route: 048
  8. LYRICA [Suspect]
     Dosage: 75 MG, 1X/DAY
     Route: 048
     Dates: start: 20110501, end: 20110503

REACTIONS (4)
  - FALL [None]
  - DRUG INEFFECTIVE [None]
  - DIZZINESS [None]
  - DIZZINESS POSTURAL [None]
